FAERS Safety Report 5716396-4 (Version None)
Quarter: 2008Q2

REPORT INFORMATION
  Report Type: 
  Country: None (occurrence: None)
  Receive Date: 20080424
  Receipt Date: 20080409
  Transmission Date: 20081010
  Serious: No
  Sender: FDA-Public Use
  Company Number: PHHY2008JP03611

PATIENT
  Age: 46 Year
  Sex: Female

DRUGS (4)
  1. VOLTAREN [Suspect]
     Indication: ANALGESIA
     Dosage: 25 MG/DAY
     Route: 048
     Dates: start: 20030331
  2. RHEUMATREX [Concomitant]
     Dosage: 2 MG/DAY
     Route: 048
     Dates: start: 20020401
  3. RIMATIL [Concomitant]
     Dosage: 100 MG/DAY
     Route: 048
     Dates: start: 20051001
  4. SELBEX [Concomitant]
     Dosage: 50 MG/DAY
     Route: 048
     Dates: start: 20020401

REACTIONS (1)
  - BLOOD CREATINE PHOSPHOKINASE INCREASED [None]
